FAERS Safety Report 22321079 (Version 2)
Quarter: 2023Q2

REPORT INFORMATION
  Report Type: Spontaneous
  Country: US (occurrence: US)
  Receive Date: 20230515
  Receipt Date: 20230525
  Transmission Date: 20230722
  Serious: Yes (Other)
  Sender: FDA-Public Use
  Company Number: US-UPSHER-SMITH LABORATORIES, LLC-2023USL00477

PATIENT
  Age: 17 Year
  Sex: Female
  Weight: 65.76 kg

DRUGS (9)
  1. MYORISAN [Suspect]
     Active Substance: ISOTRETINOIN
     Indication: Acne cystic
     Dosage: 20 MG, 1X/DAY, WITH HIGH FAT FOODS
     Route: 048
     Dates: start: 20220419, end: 20220524
  2. MYORISAN [Suspect]
     Active Substance: ISOTRETINOIN
     Dosage: 20 MG, 1X/DAY, WITH HIGH FAT FOODS (TAKEN IN ADDITION TO MYORISAN 40 MG CAPSULE)
     Route: 048
     Dates: start: 20220525, end: 20220913
  3. MYORISAN [Suspect]
     Active Substance: ISOTRETINOIN
     Dosage: UNK
     Dates: start: 20230102, end: 202301
  4. MYORISAN [Suspect]
     Active Substance: ISOTRETINOIN
     Indication: Acne cystic
     Dosage: 40 MG, 1X/DAY, WITH HIGH FAT FOODS (TAKEN IN ADDITION TO MYORISAN 20 MG CAPSULE)
     Route: 048
     Dates: start: 20220525, end: 20220913
  5. MYORISAN [Suspect]
     Active Substance: ISOTRETINOIN
     Dosage: UNK
     Dates: start: 20230102, end: 202301
  6. AMNESTEEM [Suspect]
     Active Substance: ISOTRETINOIN
     Indication: Acne cystic
     Dosage: 20 MG, 1X/DAY, WITH HIGH FAT FOODS (TAKEN IN ADDITION TO AMNESTEEM 40 MG CAPSULE)
     Route: 048
     Dates: start: 20220914, end: 20221121
  7. AMNESTEEM [Suspect]
     Active Substance: ISOTRETINOIN
     Indication: Acne cystic
     Dosage: 40 MG, 1X/DAY, WITH HIGH FAT FOODS (TAKEN IN ADDITION TO AMNESTEEM 20 MG CAPSULE)
     Route: 048
     Dates: start: 20220914, end: 20221121
  8. ISOTRETINOIN [Suspect]
     Active Substance: ISOTRETINOIN
     Indication: Acne cystic
     Dosage: 20 MG, 1X/DAY, WITH HIGH FAT FOODS (TAKEN IN ADDITION TO ISOTRETINOIN 40 MG CAPSULE)
     Route: 048
     Dates: start: 20221122, end: 20230101
  9. ISOTRETINOIN [Suspect]
     Active Substance: ISOTRETINOIN
     Indication: Acne cystic
     Dosage: 40 MG, 1X/DAY, WITH HIGH FAT FOODS (TAKEN IN ADDITION TO ISOTRETINOIN 20 MG CAPSULE)
     Route: 048
     Dates: start: 20221122, end: 20230101

REACTIONS (2)
  - Mood altered [Recovering/Resolving]
  - Inappropriate schedule of product administration [Recovered/Resolved]

NARRATIVE: CASE EVENT DATE: 20220419
